FAERS Safety Report 9183302 (Version 1)
Quarter: 2013Q1

REPORT INFORMATION
  Report Type: Spontaneous
  Country: US (occurrence: US)
  Receive Date: 20130322
  Receipt Date: 20130322
  Transmission Date: 20140127
  Serious: No
  Sender: FDA-Public Use
  Company Number: US-PFIZER INC-2013091394

PATIENT
  Sex: Female

DRUGS (1)
  1. CYTOMEL [Suspect]
     Indication: AUTOIMMUNE THYROIDITIS
     Dosage: 25 UG, 1X/DAY
     Route: 048

REACTIONS (1)
  - Drug effect decreased [Unknown]
